FAERS Safety Report 8315726-7 (Version None)
Quarter: 2012Q2

REPORT INFORMATION
  Report Type: 
  Country: None (occurrence: None)
  Receive Date: 20120426
  Receipt Date: 20120416
  Transmission Date: 20120825
  Serious: Yes (Other)
  Sender: FDA-Public Use
  Company Number: US-MERCK-1204USA03303

PATIENT
  Age: 26 Year
  Sex: Female

DRUGS (5)
  1. ISENTRESS [Suspect]
     Indication: HIV INFECTION
     Route: 048
     Dates: start: 20111121
  2. TRUVADA [Suspect]
     Indication: HIV INFECTION
     Route: 048
     Dates: start: 20110713, end: 20111027
  3. COMBIVIR [Suspect]
     Indication: HIV INFECTION
     Route: 048
     Dates: start: 20111121
  4. REYATAZ [Suspect]
     Indication: HIV INFECTION
     Route: 048
     Dates: start: 20110713, end: 20111027
  5. NORVIR [Suspect]
     Indication: HIV INFECTION
     Route: 048
     Dates: start: 20110713, end: 20111027

REACTIONS (2)
  - ABORTION INDUCED [None]
  - MATERNAL EXPOSURE DURING PREGNANCY [None]
